FAERS Safety Report 7382979-1 (Version None)
Quarter: 2011Q1

REPORT INFORMATION
  Report Type: 
  Country: None (occurrence: None)
  Receive Date: 20110330
  Receipt Date: 20110318
  Transmission Date: 20110831
  Serious: Yes (Other)
  Sender: FDA-Public Use
  Company Number: GB-RANBAXY-2011R1-43122

PATIENT
  Age: 47 Year
  Sex: Female

DRUGS (5)
  1. LEVETIRACETAM [Suspect]
     Indication: CONVULSION
     Dosage: UNK,UNK
     Route: 065
  2. OXCARBAZEPINE [Suspect]
     Indication: PRODUCT USED FOR UNKNOWN INDICATION
     Dosage: UNK,UNK
     Route: 065
  3. CLONAZEPAM [Suspect]
     Indication: PRODUCT USED FOR UNKNOWN INDICATION
     Dosage: 1.5 MG, UNK
     Route: 065
  4. DIAZEPAM [Suspect]
     Indication: PRODUCT USED FOR UNKNOWN INDICATION
     Dosage: UNK,UNK
     Route: 065
  5. LACOSAMIDE [Suspect]
     Dosage: UNK,UNK
     Route: 065

REACTIONS (7)
  - DRUG LEVEL DECREASED [None]
  - DRUG INTERACTION [None]
  - DIPLOPIA [None]
  - ANTICONVULSANT DRUG LEVEL DECREASED [None]
  - NEUROTOXICITY [None]
  - ATAXIA [None]
  - VERTIGO [None]
